FAERS Safety Report 13512308 (Version 1)
Quarter: 2017Q2

REPORT INFORMATION
  Report Type: Spontaneous
  Country: US (occurrence: US)
  Receive Date: 20170504
  Receipt Date: 20170504
  Transmission Date: 20170830
  Serious: No
  Sender: FDA-Public Use
  Company Number: None

PATIENT
  Age: 57 Year
  Sex: Female
  Weight: 62.55 kg

DRUGS (3)
  1. DAILY MULTI-VITAMIN [Suspect]
     Active Substance: VITAMINS
  2. COMBIPATCH [Suspect]
     Active Substance: ESTRADIOL\NORETHINDRONE ACETATE
     Indication: MENOPAUSE
     Dosage: ?          QUANTITY:1 PATCH(ES);OTHER FREQUENCY:ONCE A WEEK;?
     Route: 062
     Dates: start: 20140901
  3. SYNTHROID [Concomitant]
     Active Substance: LEVOTHYROXINE SODIUM

REACTIONS (2)
  - Application site pruritus [None]
  - Application site reaction [None]

NARRATIVE: CASE EVENT DATE: 20170101
